FAERS Safety Report 17792633 (Version 2)
Quarter: 2020Q2

REPORT INFORMATION
  Report Type: Spontaneous
  Country: FI (occurrence: FI)
  Receive Date: 20200515
  Receipt Date: 20200617
  Transmission Date: 20200714
  Serious: Yes (Other)
  Sender: FDA-Public Use
  Company Number: FI-ELI_LILLY_AND_COMPANY-FI202005001186

PATIENT
  Age: 60 Year
  Sex: Male

DRUGS (3)
  1. ZYPADHERA [Suspect]
     Active Substance: OLANZAPINE PAMOATE
     Indication: BIPOLAR DISORDER
     Dosage: 300 MG, 2/M
     Route: 065
     Dates: start: 2018
  2. ZYPADHERA [Suspect]
     Active Substance: OLANZAPINE PAMOATE
     Indication: BIPOLAR DISORDER
     Dosage: 300 MG, 2/M
     Route: 065
     Dates: start: 2018
  3. ZYPADHERA [Suspect]
     Active Substance: OLANZAPINE PAMOATE
     Indication: BIPOLAR DISORDER
     Dosage: 300 MG, 2/M
     Route: 065
     Dates: start: 2018

REACTIONS (8)
  - Post-injection delirium sedation syndrome [Recovered/Resolved]
  - Somnolence [Unknown]
  - Hepatic enzyme increased [Unknown]
  - Off label use [Unknown]
  - Fatigue [Recovered/Resolved]
  - Pallor [Recovered/Resolved]
  - Injection site haemorrhage [Unknown]
  - Anaphylactic shock [Recovered/Resolved]

NARRATIVE: CASE EVENT DATE: 2018
